FAERS Safety Report 4847931-6 (Version None)
Quarter: 2005Q4

REPORT INFORMATION
  Report Type: 
  Country: None (occurrence: None)
  Receive Date: 20051207
  Receipt Date: 20051207
  Transmission Date: 20060501
  Serious: Yes (Hospitalization)
  Sender: FDA-Public Use
  Company Number: None

PATIENT
  Age: 55 Year
  Sex: Female
  Weight: 95 kg

DRUGS (9)
  1. OPTIMARK [Suspect]
     Indication: VENTRICULAR DYSFUNCTION
     Dosage: 38.0 ML   ONCE  IV BOLUS
     Route: 040
     Dates: start: 20040310, end: 20040310
  2. CORDARONE [Concomitant]
  3. LISINOPRIL [Concomitant]
  4. CARVEDILOL [Concomitant]
  5. ASPIRIN [Concomitant]
  6. DIGOXIN [Concomitant]
  7. POTASSIUM [Concomitant]
  8. FUROSEMIDE [Concomitant]
  9. MINOCYCLINE [Concomitant]

REACTIONS (5)
  - EJECTION FRACTION DECREASED [None]
  - PLEURAL EFFUSION [None]
  - POST PROCEDURAL COMPLICATION [None]
  - VENTRICULAR DYSFUNCTION [None]
  - VENTRICULAR TACHYCARDIA [None]
